FAERS Safety Report 7900371-5 (Version None)
Quarter: 2011Q4

REPORT INFORMATION
  Report Type: 
  Country: None (occurrence: None)
  Receive Date: 20111108
  Receipt Date: 20111102
  Transmission Date: 20120403
  Serious: No
  Sender: FDA-Public Use
  Company Number: US-PFIZER INC-2011269420

PATIENT
  Sex: Male
  Weight: 90.703 kg

DRUGS (4)
  1. VIAGRA [Suspect]
     Dosage: UNK
     Route: 048
  2. ACETYLSALICYLIC ACID [Concomitant]
     Dosage: UNK
  3. VIAGRA [Suspect]
     Indication: ERECTILE DYSFUNCTION
     Dosage: UNK, AS NEEDED
     Route: 048
     Dates: start: 20070901
  4. MULTI-VITAMINS [Concomitant]
     Dosage: UNK

REACTIONS (1)
  - ERECTILE DYSFUNCTION [None]
